FAERS Safety Report 18974045 (Version 2)
Quarter: 2021Q2

REPORT INFORMATION
  Report Type: Spontaneous
  Country: BE (occurrence: BE)
  Receive Date: 20210305
  Receipt Date: 20210402
  Transmission Date: 20210717
  Serious: Yes (Hospitalization, Other)
  Sender: FDA-Public Use
  Company Number: BE-GUERBET-BE-20210006

PATIENT
  Sex: Female

DRUGS (1)
  1. LIPIODOL [Suspect]
     Active Substance: ETHIODIZED OIL
     Indication: MENINGITIS
     Route: 037

REACTIONS (3)
  - Arachnoiditis [Recovering/Resolving]
  - Syringomyelia [Recovering/Resolving]
  - Product use issue [Recovering/Resolving]
